FAERS Safety Report 9411897 (Version 1)
Quarter: 2013Q3

REPORT INFORMATION
  Report Type: Report from Study
  Country: MY (occurrence: MY)
  Receive Date: 20130722
  Receipt Date: 20130722
  Transmission Date: 20140515
  Serious: Yes (Other)
  Sender: FDA-Public Use
  Company Number: PHHY2013MY039799

PATIENT
  Sex: Male

DRUGS (2)
  1. GLIVEC [Suspect]
     Indication: GASTROINTESTINAL STROMAL TUMOUR
     Dosage: 400 MG, DAILY
  2. GLIVEC [Suspect]
     Dosage: 200 MG, OD
     Dates: start: 20121127

REACTIONS (3)
  - Pancreatic mass [Unknown]
  - Hepatic lesion [Unknown]
  - Blood creatinine increased [Unknown]
